FAERS Safety Report 7466360-2 (Version None)
Quarter: 2011Q2

REPORT INFORMATION
  Report Type: 
  Country: None (occurrence: None)
  Receive Date: 20110509
  Receipt Date: 20100812
  Transmission Date: 20111010
  Serious: No
  Sender: FDA-Public Use
  Company Number: US-ALEXION-A201000972

PATIENT
  Sex: Female

DRUGS (12)
  1. ADVAIR DISKUS 100/50 [Concomitant]
     Dosage: UNK
  2. COUMADIN [Concomitant]
     Dosage: UNK
  3. DILAUDID [Concomitant]
     Dosage: UNK
  4. SOLIRIS [Suspect]
     Dosage: 900 MG, Q2W
     Route: 042
     Dates: start: 20070807
  5. LASIX [Concomitant]
     Dosage: UNK
  6. POTASSIUM CHLORIDE [Concomitant]
     Dosage: UNK
  7. METOPROLOL TARTRATE [Concomitant]
     Dosage: UNK
  8. CELEXA [Concomitant]
     Dosage: UNK
  9. COLACE [Concomitant]
     Dosage: UNK
  10. ALBUTEROL [Concomitant]
     Dosage: UNK
  11. SOLIRIS [Suspect]
     Indication: PAROXYSMAL NOCTURNAL HAEMOGLOBINURIA
     Dosage: 600 MG, QW
     Route: 042
     Dates: start: 20070710, end: 20070731
  12. EXJADE [Concomitant]
     Dosage: UNK

REACTIONS (3)
  - DIARRHOEA [None]
  - ABDOMINAL PAIN [None]
  - HEADACHE [None]
